FAERS Safety Report 15627038 (Version 1)
Quarter: 2018Q4

REPORT INFORMATION
  Report Type: Report from Study
  Country: US (occurrence: US)
  Receive Date: 20181116
  Receipt Date: 20181116
  Transmission Date: 20190205
  Serious: No
  Sender: FDA-Public Use
  Company Number: US-ALEXION PHARMACEUTICALS INC.-A201814979

PATIENT
  Sex: Female

DRUGS (1)
  1. SOLIRIS [Suspect]
     Active Substance: ECULIZUMAB
     Indication: PAROXYSMAL NOCTURNAL HAEMOGLOBINURIA
     Dosage: UNK UNK, EVERY 14 DAYS
     Route: 042

REACTIONS (10)
  - Alanine aminotransferase decreased [Unknown]
  - Glomerular filtration rate decreased [Unknown]
  - Blood potassium decreased [Unknown]
  - Platelet count increased [Unknown]
  - Red cell distribution width decreased [Unknown]
  - Blood creatinine decreased [Unknown]
  - Red blood cell count decreased [Unknown]
  - Mean platelet volume decreased [Unknown]
  - Haemoglobin decreased [Unknown]
  - Haematocrit decreased [Unknown]

NARRATIVE: CASE EVENT DATE: 20180920
